FAERS Safety Report 25726365 (Version 1)
Quarter: 2025Q3

REPORT INFORMATION
  Report Type: Spontaneous
  Country: US (occurrence: US)
  Receive Date: 20250826
  Receipt Date: 20250826
  Transmission Date: 20251020
  Serious: Yes (Other)
  Sender: SANOFI AVENTIS
  Company Number: US-SA-2025SA254748

PATIENT
  Age: 54 Year
  Sex: Female
  Weight: 89.8 kg

DRUGS (20)
  1. DUPIXENT [Suspect]
     Active Substance: DUPILUMAB
     Indication: Dermatitis atopic
     Route: 058
     Dates: start: 20250808, end: 20250808
  2. DUPIXENT [Suspect]
     Active Substance: DUPILUMAB
     Route: 058
     Dates: end: 20250820
  3. PAROXETINE [Concomitant]
     Active Substance: PAROXETINE
  4. PRAZOSIN [Concomitant]
     Active Substance: PRAZOSIN
  5. TRAZODONE [Concomitant]
     Active Substance: TRAZODONE HYDROCHLORIDE
  6. MOMETASONE FUROATE [Concomitant]
     Active Substance: MOMETASONE FUROATE
  7. TOPIRAMATE [Concomitant]
     Active Substance: TOPIRAMATE
  8. MYRBETRIQ [Concomitant]
     Active Substance: MIRABEGRON
  9. MONTELUKAST [Concomitant]
     Active Substance: MONTELUKAST
  10. LAMOTRIGINE [Concomitant]
     Active Substance: LAMOTRIGINE
  11. AMLODIPINE [Concomitant]
     Active Substance: AMLODIPINE BESYLATE
  12. LEVOTHYROXINE [Concomitant]
     Active Substance: LEVOTHYROXINE
  13. GLIMEPIRIDE [Concomitant]
     Active Substance: GLIMEPIRIDE
  14. ATORVASTATIN [Concomitant]
     Active Substance: ATORVASTATIN
  15. VYVANSE [Concomitant]
     Active Substance: LISDEXAMFETAMINE DIMESYLATE
  16. JANUVIA [Concomitant]
     Active Substance: SITAGLIPTIN PHOSPHATE
  17. HYDROXYZINE [Concomitant]
     Active Substance: HYDROXYZINE HYDROCHLORIDE
  18. LIDOCAINE [Concomitant]
     Active Substance: LIDOCAINE
  19. CLOBETASOL PROPIONATE [Concomitant]
     Active Substance: CLOBETASOL PROPIONATE
  20. FENOFIBRATE [Concomitant]
     Active Substance: FENOFIBRATE

REACTIONS (9)
  - Drug hypersensitivity [Unknown]
  - Somnolence [Unknown]
  - Swelling face [Unknown]
  - Pain [Unknown]
  - Movement disorder [Unknown]
  - Malaise [Recovering/Resolving]
  - Discomfort [Unknown]
  - Dizziness [Unknown]
  - Nausea [Unknown]

NARRATIVE: CASE EVENT DATE: 20250808
